FAERS Safety Report 5627698-4 (Version None)
Quarter: 2008Q1

REPORT INFORMATION
  Report Type: 
  Country: None (occurrence: None)
  Receive Date: 20080215
  Receipt Date: 20080211
  Transmission Date: 20080703
  Serious: Yes (Hospitalization)
  Sender: FDA-Public Use
  Company Number: US-AVENTIS-200810890US

PATIENT
  Sex: Female

DRUGS (3)
  1. LOVENOX [Suspect]
     Dosage: DOSE: UNK
     Dates: start: 20080124
  2. INTEGRILIN [Suspect]
     Dosage: DOSE: UNK
     Route: 041
     Dates: start: 20080124, end: 20080124
  3. TENECTEPLASE [Suspect]
     Dosage: DOSE: UNK
     Dates: start: 20080124

REACTIONS (6)
  - GINGIVAL BLEEDING [None]
  - HAEMATEMESIS [None]
  - HAEMOPTYSIS [None]
  - PLEURAL EFFUSION [None]
  - PULMONARY EMBOLISM [None]
  - PULMONARY HAEMORRHAGE [None]
